FAERS Safety Report 20904895 (Version 3)
Quarter: 2022Q3

REPORT INFORMATION
  Report Type: Spontaneous
  Country: US (occurrence: US)
  Receive Date: 20220602
  Receipt Date: 20220704
  Transmission Date: 20221027
  Serious: No
  Sender: FDA-Public Use
  Company Number: US-ORGANON-O2205USA002530

PATIENT
  Sex: Female
  Weight: 136.96 kg

DRUGS (5)
  1. NEXPLANON [Suspect]
     Active Substance: ETONOGESTREL
     Dosage: ONE EVERY THREE YEARS
     Route: 059
     Dates: start: 20190517, end: 20220527
  2. NAPROSYN [Concomitant]
     Active Substance: NAPROXEN
     Dosage: TAKE 1 TABLET BY MOUTH TWICE DAILY
     Route: 048
     Dates: start: 20190502, end: 20190605
  3. NAPROSYN [Concomitant]
     Active Substance: NAPROXEN
     Dosage: TAKE 1 TABLET BY MOUTH TWICE A DAV
     Route: 048
     Dates: start: 20190605
  4. GLUCOPHAGE XR [Concomitant]
     Active Substance: METFORMIN HYDROCHLORIDE
     Dosage: TAKE 1 TAB BY MOUTH DAILY WITH A MEAL
     Route: 048
     Dates: start: 20190502, end: 20190804
  5. IMITREX [Concomitant]
     Active Substance: SUMATRIPTAN SUCCINATE
     Dosage: WHEN NEEDED TAKE 1 TABLET ORALLY WITH FLUIDS, MAY REPEAT AFTER 2 HOURS HAVE ELAPSED. MAXIMUM DOSE: 2
     Route: 048
     Dates: start: 20190502, end: 20220527

REACTIONS (5)
  - Device kink [Recovered/Resolved]
  - Device placement issue [Recovered/Resolved]
  - Device breakage [Recovered/Resolved]
  - Incorrect product administration duration [Unknown]
  - No adverse event [Unknown]

NARRATIVE: CASE EVENT DATE: 20190101
